FAERS Safety Report 6285563-6 (Version None)
Quarter: 2009Q3

REPORT INFORMATION
  Report Type: 
  Country: None (occurrence: None)
  Receive Date: 20090727
  Receipt Date: 20090716
  Transmission Date: 20100115
  Serious: Yes (Other)
  Sender: FDA-Public Use
  Company Number: US-TYCO HEALTHCARE/MALLINCKRODT-T200600905

PATIENT

DRUGS (13)
  1. OPTIMARK [Suspect]
     Dosage: UNK, SINGLE
     Dates: start: 20051006, end: 20051006
  2. OPTIMARK [Suspect]
     Dosage: UNK, SINGLE
     Dates: start: 20051011, end: 20051011
  3. OPTIMARK [Suspect]
     Dosage: UNK, SINGLE
     Dates: start: 20051203, end: 20051203
  4. LEXAPRO [Concomitant]
  5. QUININE [Concomitant]
  6. AVAPRO [Concomitant]
  7. SINGULAIR [Concomitant]
  8. FOLATE [Concomitant]
  9. PERCOCET [Concomitant]
  10. SODIUM BICARBONATE [Concomitant]
  11. BENADRYL [Concomitant]
     Dosage: UNK, UNK
  12. BENADRYL [Concomitant]
     Dates: start: 20051011, end: 20051011
  13. BENADRYL [Concomitant]
     Dates: start: 20051011, end: 20051011

REACTIONS (4)
  - BONE INFARCTION [None]
  - NEPHROGENIC SYSTEMIC FIBROSIS [None]
  - OFF LABEL USE [None]
  - RENAL ATROPHY [None]
